FAERS Safety Report 6156647-8 (Version None)
Quarter: 2009Q2

REPORT INFORMATION
  Report Type: 
  Country: None (occurrence: None)
  Receive Date: 20090416
  Receipt Date: 20090409
  Transmission Date: 20091009
  Serious: No
  Sender: FDA-Public Use
  Company Number: US-JNJFOC-20090402927

PATIENT
  Sex: Male
  Weight: 88.91 kg

DRUGS (5)
  1. DURAGESIC-100 [Suspect]
     Indication: SPINAL DISORDER
     Dosage: UNSPECIFIED INCURABLE SPINAL DISEASE
     Route: 062
  2. XANAX [Concomitant]
     Indication: ANXIETY
     Route: 048
  3. FLOMAX [Concomitant]
     Indication: RENAL DISORDER
     Route: 048
  4. LISINOPRIL [Concomitant]
     Indication: HYPERTENSION
     Route: 048
  5. SINGULAIR [Concomitant]
     Indication: SINUSITIS
     Route: 048

REACTIONS (3)
  - PAIN [None]
  - PRODUCT QUALITY ISSUE [None]
  - WRONG TECHNIQUE IN DRUG USAGE PROCESS [None]
